FAERS Safety Report 17826389 (Version 1)
Quarter: 2020Q2

REPORT INFORMATION
  Report Type: Spontaneous
  Country: GB (occurrence: GB)
  Receive Date: 20200527
  Receipt Date: 20200527
  Transmission Date: 20200714
  Serious: Yes (Hospitalization)
  Sender: FDA-Public Use
  Company Number: GB-AUROBINDO-AUR-APL-2020-025680

PATIENT
  Age: 79 Year
  Sex: Male

DRUGS (3)
  1. LORAZEPAM. [Suspect]
     Active Substance: LORAZEPAM
     Indication: NEUROPSYCHIATRIC SYMPTOMS
     Dosage: UNK
     Route: 065
  2. RISPERIDONE. [Suspect]
     Active Substance: RISPERIDONE
     Indication: NEUROPSYCHIATRIC SYMPTOMS
     Dosage: 500 MICROGRAM, TWO TIMES A DAY (INCREASED TO 1MG TWICE A DAY AFTER 7 DAYS), (100 MG DAILY)
     Route: 048
     Dates: start: 20200422, end: 20200427
  3. RISPERIDONE. [Suspect]
     Active Substance: RISPERIDONE
     Dosage: 2 MILLIGRAM, ONCE A DAY (500MCG TWICE A DAY INCREASED TO 1MG TWICE A DAY AFTER 7 DAYS)
     Route: 048
     Dates: start: 20200428

REACTIONS (2)
  - Therapy change [Unknown]
  - Sedation complication [Unknown]
